FAERS Safety Report 21368991 (Version 2)
Quarter: 2022Q4

REPORT INFORMATION
  Report Type: Spontaneous
  Country: DE (occurrence: DE)
  Receive Date: 20220923
  Receipt Date: 20221125
  Transmission Date: 20230113
  Serious: Yes (Death, Life-Threatening, Hospitalization, Other)
  Sender: FDA-Public Use
  Company Number: DE-002147023-NVSC2022DE177839

PATIENT
  Age: 74 Year
  Sex: Female

DRUGS (3)
  1. ATROVENT [Suspect]
     Active Substance: IPRATROPIUM BROMIDE
     Indication: Product used for unknown indication
     Route: 065
     Dates: start: 2018
  2. CORTISONE [Suspect]
     Active Substance: CORTISONE
     Indication: Product used for unknown indication
     Route: 065
     Dates: start: 2018
  3. ALBUTEROL SULFATE [Suspect]
     Active Substance: ALBUTEROL SULFATE
     Indication: Asthma
     Dosage: UNK (4 TO 3-5 TIMES) EVERY 3-4 HOURS
     Route: 055
     Dates: start: 2018

REACTIONS (9)
  - Choking [Fatal]
  - Brain injury [Fatal]
  - Obstructive airways disorder [Fatal]
  - Productive cough [Unknown]
  - Asthma [Unknown]
  - Dementia Alzheimer^s type [Not Recovered/Not Resolved]
  - Dysphagia [Unknown]
  - Sputum retention [Unknown]
  - Muscle spasticity [Unknown]

NARRATIVE: CASE EVENT DATE: 20180721
